FAERS Safety Report 10310187 (Version 1)
Quarter: 2014Q3

REPORT INFORMATION
  Report Type: Spontaneous
  Country: FR (occurrence: FR)
  Receive Date: 20140717
  Receipt Date: 20140717
  Transmission Date: 20150326
  Serious: Yes (Death)
  Sender: FDA-Public Use
  Company Number: FR-ROCHE-1433910

PATIENT
  Age: 81 Year
  Sex: Female

DRUGS (6)
  1. APRANAX [Suspect]
     Active Substance: NAPROXEN
     Indication: BACK PAIN
     Route: 048
     Dates: start: 20140519, end: 20140603
  2. ATENOLOL. [Concomitant]
     Active Substance: ATENOLOL
     Route: 065
     Dates: start: 20140519
  3. ATROVENT [Concomitant]
     Active Substance: IPRATROPIUM BROMIDE
     Route: 065
     Dates: start: 20140519
  4. OMEPRAZOLE. [Concomitant]
     Active Substance: OMEPRAZOLE
  5. TRANDOLAPRIL. [Suspect]
     Active Substance: TRANDOLAPRIL
     Indication: HYPERTENSION
     Dosage: LONG TERM THERAPY
     Route: 048
     Dates: start: 20140519, end: 20140603
  6. KARDEGIC [Concomitant]
     Active Substance: ASPIRIN LYSINE
     Route: 065
     Dates: start: 20140519

REACTIONS (1)
  - Renal failure acute [Fatal]

NARRATIVE: CASE EVENT DATE: 20140603
